FAERS Safety Report 9459614 (Version 1)
Quarter: 2013Q3

REPORT INFORMATION
  Report Type: Spontaneous
  Country: US (occurrence: US)
  Receive Date: 20130815
  Receipt Date: 20130815
  Transmission Date: 20140515
  Serious: Yes (Hospitalization)
  Sender: FDA-Public Use
  Company Number: US-COVIDIEN/TYCO HEALTHCARE/MALLINCKRODT-T201303907

PATIENT
  Age: 60 Year
  Sex: Male
  Weight: 61.43 kg

DRUGS (2)
  1. FENTANYL TRANSDERMAL SYSTEM [Suspect]
     Indication: BACK PAIN
     Dosage: 75 UG/HR EVERY OTHER DAY
     Route: 062
     Dates: start: 20130608, end: 20130628
  2. FENTANYL [Concomitant]
     Indication: BACK PAIN
     Dosage: 100 MCG/HR Q 72 HOURS
     Route: 062
     Dates: end: 20130608

REACTIONS (3)
  - Gastrointestinal disorder [Recovered/Resolved]
  - Nausea [Recovered/Resolved]
  - Drug ineffective [Recovered/Resolved]
